FAERS Safety Report 4623882-7 (Version None)
Quarter: 2005Q1

REPORT INFORMATION
  Report Type: 
  Country: None (occurrence: None)
  Receive Date: 20050331
  Receipt Date: 20050325
  Transmission Date: 20050727
  Serious: Yes (Hospitalization)
  Sender: FDA-Public Use
  Company Number: US-JNJFOC-20050306858

PATIENT
  Sex: Female

DRUGS (4)
  1. FENTANYL [Suspect]
     Route: 062
  2. DURAGESIC-100 [Suspect]
     Route: 062
  3. DARVOCET [Concomitant]
     Route: 049
  4. DARVOCET [Concomitant]
     Indication: PAIN
     Route: 049

REACTIONS (5)
  - INSOMNIA [None]
  - MOOD SWINGS [None]
  - TEARFULNESS [None]
  - THERAPEUTIC RESPONSE DECREASED [None]
  - ULCER HAEMORRHAGE [None]
